FAERS Safety Report 16230417 (Version 2)
Quarter: 2019Q2

REPORT INFORMATION
  Report Type: Report from Study
  Country: US (occurrence: US)
  Receive Date: 20190423
  Receipt Date: 20190615
  Transmission Date: 20190711
  Serious: Yes (Other)
  Sender: FDA-Public Use
  Company Number: PHEH2019US017070

PATIENT
  Age: 69 Year
  Sex: Female

DRUGS (1)
  1. COSENTYX [Suspect]
     Active Substance: SECUKINUMAB
     Indication: PSORIASIS
     Dosage: 300 MG, QMO
     Route: 058
     Dates: start: 20190131

REACTIONS (5)
  - Diabetes mellitus [Unknown]
  - Impaired healing [Unknown]
  - Cough [Unknown]
  - Skin ulcer [Not Recovered/Not Resolved]
  - Nasopharyngitis [Unknown]
